FAERS Safety Report 12612902 (Version 1)
Quarter: 2016Q3

REPORT INFORMATION
  Report Type: Report from Study
  Country: US (occurrence: US)
  Receive Date: 20160802
  Receipt Date: 20160802
  Transmission Date: 20161109
  Serious: Yes (Other)
  Sender: FDA-Public Use
  Company Number: US-AMGEN-USASL2016098124

PATIENT
  Age: 54 Year
  Sex: Female

DRUGS (1)
  1. ENBREL [Suspect]
     Active Substance: ETANERCEPT
     Indication: ANKYLOSING SPONDYLITIS
     Dosage: UNK UNK, QWK
     Route: 065

REACTIONS (7)
  - Osteomyelitis [Unknown]
  - Laboratory test abnormal [Unknown]
  - Drug effect delayed [Unknown]
  - Fall [Unknown]
  - Dysphonia [Unknown]
  - Ankylosing spondylitis [Unknown]
  - Localised infection [Unknown]

NARRATIVE: CASE EVENT DATE: 20160511
